FAERS Safety Report 5232615-5 (Version None)
Quarter: 2007Q1

REPORT INFORMATION
  Report Type: 
  Country: None (occurrence: None)
  Receive Date: 20070206
  Receipt Date: 20070206
  Transmission Date: 20070707
  Serious: Yes (Life-Threatening, Hospitalization)
  Sender: FDA-Public Use
  Company Number: None

PATIENT
  Age: 57 Year
  Sex: Male
  Weight: 76.2043 kg

DRUGS (7)
  1. LISINOPRIL [Suspect]
     Indication: CEREBROVASCULAR ACCIDENT
     Dosage: 20 MG 1/2 TABLET DAILY ORALLY
     Route: 048
     Dates: start: 20060723
  2. GABAPENTIN [Concomitant]
  3. HYDROCHLORITHIAZIDE [Concomitant]
  4. LISINOPRIL [Concomitant]
  5. SIMVASTATIN [Concomitant]
  6. ATENOLOL [Concomitant]
  7. TEMAZEPAM [Concomitant]

REACTIONS (3)
  - ANAPHYLACTIC REACTION [None]
  - ANGIOEDEMA [None]
  - HYPERTENSION [None]
